FAERS Safety Report 8615960-2 (Version None)
Quarter: 2012Q3

REPORT INFORMATION
  Report Type: 
  Country: None (occurrence: None)
  Receive Date: 20120823
  Receipt Date: 20120815
  Transmission Date: 20120928
  Serious: Yes (Disabling, Other)
  Sender: FDA-Public Use
  Company Number: US-009507513-1207USA003583

PATIENT

DRUGS (5)
  1. FOSAMAX [Suspect]
     Indication: OSTEOPOROSIS
     Dosage: 70 MG,QW
     Route: 048
     Dates: start: 20020101, end: 20080301
  2. LITHIUM CARBONATE [Concomitant]
     Dosage: UNK
  3. LISINOPRIL [Concomitant]
     Dosage: UNK
  4. SIMVASTATIN [Concomitant]
  5. FUROSEMIDE [Concomitant]
     Dosage: UNK

REACTIONS (3)
  - BONE DENSITY DECREASED [None]
  - FRACTURE DELAYED UNION [None]
  - FEMUR FRACTURE [None]
